FAERS Safety Report 7028091-2 (Version None)
Quarter: 2010Q4

REPORT INFORMATION
  Report Type: 
  Country: None (occurrence: None)
  Receive Date: 20101005
  Receipt Date: 20100921
  Transmission Date: 20110411
  Serious: Yes (Hospitalization, Other)
  Sender: FDA-Public Use
  Company Number: US-RANBAXY-2010RR-38548

PATIENT
  Age: 49 Year
  Sex: Male

DRUGS (33)
  1. LISINOPRIL [Suspect]
     Indication: HYPERTENSION
     Dosage: 10 MG, UNK
     Route: 048
  2. LISINOPRIL [Suspect]
     Dosage: 20 MG, UNK
  3. TRICOR [Suspect]
     Indication: BLOOD CHOLESTEROL INCREASED
     Dosage: 145 MG, UNK
     Route: 048
     Dates: start: 20080901
  4. CHANTIX [Suspect]
     Indication: SMOKING CESSATION THERAPY
     Dosage: 0.5 MG, UNK
     Route: 048
     Dates: start: 20061010, end: 20061011
  5. CHANTIX [Suspect]
     Dosage: 0.5 MG, UNK
     Route: 048
     Dates: start: 20080701
  6. CHANTIX [Suspect]
     Dosage: 1 MG, UNK
     Route: 048
     Dates: start: 20080101, end: 20080919
  7. CHANTIX [Suspect]
     Dosage: 0.5 MG, UNK
     Route: 048
     Dates: start: 20100601, end: 20100601
  8. CHANTIX [Suspect]
     Dosage: 0.5 MG, UNK
     Route: 048
     Dates: start: 20100610
  9. CELEBREX [Suspect]
     Indication: BACK PAIN
     Dosage: 200 MG, UNK
     Dates: start: 20080101
  10. PROZAC [Suspect]
     Indication: DEPRESSION
     Dosage: 60 MG, UNK
     Route: 048
  11. PROZAC [Suspect]
     Dosage: 90 MG, UNK
  12. RISPERDAL [Suspect]
  13. WELCHOL [Suspect]
     Indication: BLOOD CHOLESTEROL
     Dosage: 1950 MG, UNK
     Route: 048
  14. LOVEZA [Suspect]
     Indication: BLOOD CHOLESTEROL
     Dosage: 4 G, UNK
     Route: 048
  15. SINGULAIR [Concomitant]
  16. OXCARBAZEPINE [Concomitant]
  17. TRAZODONE HCL [Concomitant]
  18. LOVASTATIN [Concomitant]
  19. DOXYCYCLINE [Concomitant]
  20. TENIDAP SODIUM [Concomitant]
  21. TAMSULOSIN [Concomitant]
  22. METFORMIN [Concomitant]
     Indication: BLOOD GLUCOSE ABNORMAL
     Dosage: 1 G, UNK
  23. TRAMADOL HCL [Concomitant]
     Indication: PAIN
     Dosage: 200 MG, UNK
  24. DICLOFENAC SODIUM [Concomitant]
  25. DEPAKOTE [Concomitant]
  26. ACTOS [Concomitant]
     Indication: BLOOD GLUCOSE ABNORMAL
     Dosage: 40 MG, UNK
  27. BYETTA [Concomitant]
  28. MAXZIDE [Concomitant]
     Indication: BLOOD PRESSURE
  29. FLOMAX [Concomitant]
     Indication: URINARY TRACT DISORDER
     Dosage: 0.4 MG, UNK
     Dates: start: 20090101
  30. TYLENOL [Concomitant]
     Indication: HEADACHE
     Dosage: 1 G, UNK
  31. SANCTURA [Concomitant]
     Indication: PROSTATIC DISORDER
     Dosage: 60 MG, UNK
  32. LYRICA [Concomitant]
     Indication: BACK PAIN
     Dosage: 150 MG, UNK
  33. NEXIUM [Concomitant]
     Indication: GASTRIC DISORDER
     Dosage: 40 MG, UNK

REACTIONS (15)
  - ABDOMINAL DISCOMFORT [None]
  - ABNORMAL LOSS OF WEIGHT [None]
  - BACK PAIN [None]
  - DIARRHOEA [None]
  - GASTROINTESTINAL DISORDER [None]
  - HEADACHE [None]
  - INTESTINAL FUNCTIONAL DISORDER [None]
  - MEMORY IMPAIRMENT [None]
  - NAUSEA [None]
  - NERVOUSNESS [None]
  - PHOTOPHOBIA [None]
  - RASH [None]
  - SURGERY [None]
  - VISUAL IMPAIRMENT [None]
  - VOMITING [None]
